FAERS Safety Report 6036249-4 (Version None)
Quarter: 2009Q1

REPORT INFORMATION
  Report Type: 
  Country: None (occurrence: None)
  Receive Date: 20090113
  Receipt Date: 20081229
  Transmission Date: 20090719
  Serious: Yes (Other)
  Sender: FDA-Public Use
  Company Number: DE-GENENTECH-275210

PATIENT
  Age: 40 Year
  Sex: Male

DRUGS (1)
  1. MABTHERA [Suspect]
     Indication: GLOMERULONEPHRITIS MEMBRANOUS
     Dosage: 375 MG/M2, 4 X PER 4 WEEKS

REACTIONS (1)
  - RENAL FAILURE [None]
